FAERS Safety Report 5283552-1 (Version None)
Quarter: 2007Q1

REPORT INFORMATION
  Report Type: 
  Country: None (occurrence: None)
  Receive Date: 20061226
  Receipt Date: 20060914
  Transmission Date: 20070707
  Serious: Yes (Other)
  Sender: FDA-Public Use
  Company Number: PHEH2006US11785

PATIENT
  Sex: Female

DRUGS (2)
  1. ENABLEX [Suspect]
     Indication: HYPERTONIC BLADDER
     Dosage: 7.5 MG, QD;
     Dates: start: 20060911
  2. LAXATIVES (NO INGREDIENTS/SUBSTANCES) [Concomitant]

REACTIONS (2)
  - CONSTIPATION [None]
  - FAECAL DISIMPACTION [None]
